FAERS Safety Report 7559862-1 (Version None)
Quarter: 2011Q2

REPORT INFORMATION
  Report Type: 
  Country: None (occurrence: None)
  Receive Date: 20110617
  Receipt Date: 20110617
  Transmission Date: 20111010
  Serious: Yes (Death)
  Sender: FDA-Public Use
  Company Number: None

PATIENT
  Age: 69 Year
  Sex: Female

DRUGS (1)
  1. PACLITAXEL [Suspect]
     Indication: LUNG NEOPLASM MALIGNANT
     Dosage: 6MG/ML IV DRIP
     Route: 041
     Dates: start: 20110523, end: 20110523

REACTIONS (2)
  - CONVULSION [None]
  - CARDIO-RESPIRATORY ARREST [None]
